FAERS Safety Report 21806130 (Version 1)
Quarter: 2023Q1

REPORT INFORMATION
  Report Type: Spontaneous
  Country: BE (occurrence: BE)
  Receive Date: 20230102
  Receipt Date: 20230102
  Transmission Date: 20230417
  Serious: Yes (Hospitalization, Disabling)
  Sender: FDA-Public Use
  Company Number: None

PATIENT
  Age: 52 Year
  Sex: Female
  Weight: 63 kg

DRUGS (10)
  1. PRIVIGEN [Suspect]
     Active Substance: HUMAN IMMUNOGLOBULIN G
     Indication: Secondary immunodeficiency
     Dosage: 20 GRAM, QMT
     Route: 042
     Dates: start: 20211020
  2. PRIVIGEN [Suspect]
     Active Substance: HUMAN IMMUNOGLOBULIN G
     Indication: Hypogammaglobulinaemia
  3. PRIVIGEN [Suspect]
     Active Substance: HUMAN IMMUNOGLOBULIN G
     Indication: Infection
  4. CALCIUM CARBONATE [Concomitant]
     Active Substance: CALCIUM CARBONATE
  5. BROMAZEPAM [Concomitant]
     Active Substance: BROMAZEPAM
  6. TRAMADOL [Concomitant]
     Active Substance: TRAMADOL
  7. ALPRAZOLAM [Concomitant]
     Active Substance: ALPRAZOLAM
  8. MIRTAZAPINE [Concomitant]
     Active Substance: MIRTAZAPINE
  9. ACYCLOVIR [Concomitant]
     Active Substance: ACYCLOVIR
     Dosage: 750 MG/ 8H
     Route: 042
  10. LYRICA [Concomitant]
     Active Substance: PREGABALIN

REACTIONS (10)
  - Chills [Recovering/Resolving]
  - Incorrect drug administration rate [Recovering/Resolving]
  - Pyrexia [Recovering/Resolving]
  - Incorrect drug administration rate [Recovering/Resolving]
  - Hypertension [Recovering/Resolving]
  - Incorrect drug administration rate [Recovering/Resolving]
  - Oxygen saturation decreased [Recovering/Resolving]
  - Incorrect drug administration rate [Recovering/Resolving]
  - Transfusion-related acute lung injury [Recovering/Resolving]
  - Incorrect drug administration rate [Recovering/Resolving]

NARRATIVE: CASE EVENT DATE: 20211020
